FAERS Safety Report 21766505 (Version 15)
Quarter: 2024Q1

REPORT INFORMATION
  Report Type: Spontaneous
  Country: US (occurrence: US)
  Receive Date: 20221222
  Receipt Date: 20240112
  Transmission Date: 20240410
  Serious: No
  Sender: FDA-Public Use
  Company Number: US-PFIZER INC-PV202200129350

PATIENT
  Age: 65 Year
  Sex: Female
  Weight: 71.202 kg

DRUGS (6)
  1. BOSULIF [Suspect]
     Active Substance: BOSUTINIB MONOHYDRATE
     Indication: Chronic myeloid leukaemia
     Dosage: 100 MG, DAILY (TAKE 100 MG BY MOUTH DAILY)
     Route: 048
     Dates: start: 20210103, end: 20220106
  2. BOSULIF [Suspect]
     Active Substance: BOSUTINIB MONOHYDRATE
     Dosage: TAKE 400 MG 1 (ONE) TIME A DAY
     Route: 048
     Dates: start: 2022
  3. BOSULIF [Suspect]
     Active Substance: BOSUTINIB MONOHYDRATE
     Dosage: 300 MG
     Dates: start: 20220202
  4. BOSULIF [Suspect]
     Active Substance: BOSUTINIB MONOHYDRATE
     Dosage: TAKE 2 TABLETS (200 MG TOTAL) 1 (ONE) TIME OF A DAY
     Route: 048
  5. BOSULIF [Suspect]
     Active Substance: BOSUTINIB MONOHYDRATE
     Dosage: TAKE 1 TABLET (100 MG TOTAL) BY MOUTH ONCE DAILY
     Route: 048
     Dates: start: 202301
  6. FAMOTIDINE [Concomitant]
     Active Substance: FAMOTIDINE
     Dosage: UNK
     Dates: start: 202211

REACTIONS (12)
  - Rash pruritic [Not Recovered/Not Resolved]
  - Erythema [Not Recovered/Not Resolved]
  - Skin lesion [Unknown]
  - COVID-19 [Unknown]
  - Malaise [Unknown]
  - Fatigue [Recovered/Resolved]
  - Diarrhoea [Recovered/Resolved]
  - Dysphonia [Recovered/Resolved]
  - Ocular discomfort [Unknown]
  - Pain [Unknown]
  - Furuncle [Unknown]
  - Illness [Recovered/Resolved]

NARRATIVE: CASE EVENT DATE: 20220101
